FAERS Safety Report 8494367-5 (Version None)
Quarter: 2012Q2

REPORT INFORMATION
  Report Type: 
  Country: None (occurrence: None)
  Receive Date: 20120628
  Receipt Date: 20120619
  Transmission Date: 20120825
  Serious: Yes (Hospitalization)
  Sender: FDA-Public Use
  Company Number: 2012SP033935

PATIENT
  Age: 40 Year
  Sex: Female

DRUGS (5)
  1. ATACAND [Concomitant]
  2. ATORVASTATIN CALCIUM [Suspect]
     Indication: PRODUCT USED FOR UNKNOWN INDICATION
     Dosage: 10 MG;QD;PO
     Route: 048
     Dates: end: 20120430
  3. SECTRAL [Concomitant]
  4. ASPIRIN [Concomitant]
  5. CERAZETTE (DESOGESTREL /00754001/) [Suspect]
     Indication: PRODUCT USED FOR UNKNOWN INDICATION
     Dosage: 0.075 MG;QD;PO
     Route: 048
     Dates: end: 20120430

REACTIONS (4)
  - HEPATITIS ACUTE [None]
  - CYTOLYTIC HEPATITIS [None]
  - CHOLESTASIS [None]
  - OCULAR ICTERUS [None]
